FAERS Safety Report 8185193-5 (Version None)
Quarter: 2012Q1

REPORT INFORMATION
  Report Type: 
  Country: None (occurrence: None)
  Receive Date: 20120305
  Receipt Date: 20120227
  Transmission Date: 20120608
  Serious: Yes (Other)
  Sender: FDA-Public Use
  Company Number: KR-ROCHE-1044068

PATIENT

DRUGS (3)
  1. COPEGUS [Suspect]
     Indication: HEPATITIS C
  2. PEGINTERFERON ALFA-2B [Suspect]
     Indication: HEPATITIS C
     Route: 065
  3. PEGINTERFERON ALFA-2A [Suspect]
     Indication: HEPATITIS C
     Route: 065

REACTIONS (4)
  - AFFECT LABILITY [None]
  - GASTROINTESTINAL DISORDER [None]
  - SKIN REACTION [None]
  - INFLUENZA LIKE ILLNESS [None]
